FAERS Safety Report 13369196 (Version 1)
Quarter: 2017Q1

REPORT INFORMATION
  Report Type: Report from Study
  Country: US (occurrence: US)
  Receive Date: 20170324
  Receipt Date: 20170324
  Transmission Date: 20170429
  Serious: Yes (Hospitalization)
  Sender: FDA-Public Use
  Company Number: US-JNJFOC-20170324765

PATIENT
  Age: 60 Year
  Sex: Female

DRUGS (13)
  1. LIPITOR [Concomitant]
     Active Substance: ATORVASTATIN CALCIUM
  2. LAMICTAL [Concomitant]
     Active Substance: LAMOTRIGINE
  3. BENTYL [Concomitant]
     Active Substance: DICYCLOMINE HYDROCHLORIDE
  4. ALEVE [Concomitant]
     Active Substance: NAPROXEN SODIUM
  5. LASIX [Concomitant]
     Active Substance: FUROSEMIDE
  6. IMBRUVICA [Suspect]
     Active Substance: IBRUTINIB
     Indication: B-CELL SMALL LYMPHOCYTIC LYMPHOMA
     Route: 048
     Dates: start: 20170310
  7. ZOLOFT [Concomitant]
     Active Substance: SERTRALINE HYDROCHLORIDE
  8. ZANTAC [Concomitant]
     Active Substance: RANITIDINE HYDROCHLORIDE
  9. FERROUS SULFATE. [Concomitant]
     Active Substance: FERROUS SULFATE
  10. ALBUTEROL. [Concomitant]
     Active Substance: ALBUTEROL
  11. ATIVAN [Concomitant]
     Active Substance: LORAZEPAM
  12. METFORMIN [Concomitant]
     Active Substance: METFORMIN HYDROCHLORIDE
  13. TOPAMAX [Concomitant]
     Active Substance: TOPIRAMATE

REACTIONS (5)
  - Nausea [Recovered/Resolved]
  - Abdominal pain upper [Unknown]
  - Colitis [Not Recovered/Not Resolved]
  - Urinary retention [Unknown]
  - Blood pressure systolic increased [Unknown]

NARRATIVE: CASE EVENT DATE: 20170314
